FAERS Safety Report 13225507 (Version 2)
Quarter: 2017Q1

REPORT INFORMATION
  Report Type: Spontaneous
  Country: BR (occurrence: BR)
  Receive Date: 20170213
  Receipt Date: 20170330
  Transmission Date: 20170428
  Serious: Yes (Hospitalization)
  Sender: FDA-Public Use
  Company Number: BR-JNJFOC-20170209049

PATIENT
  Sex: Female
  Weight: 53 kg

DRUGS (2)
  1. TYLENOL [Suspect]
     Active Substance: ACETAMINOPHEN
     Indication: PAIN
     Dosage: 2ND DOSE: 8 HRS AFTER 1ST DOSE; 3RD DOSE: 6 HRS AFTER 2ND DOSE; 4TH DOSE: 4 HRS AFTER THE 3RD DOSE.
     Route: 048
     Dates: start: 20161125, end: 20161125
  2. TYLENOL [Suspect]
     Active Substance: ACETAMINOPHEN
     Indication: PYREXIA
     Dosage: 2ND DOSE: 8 HRS AFTER 1ST DOSE; 3RD DOSE: 6 HRS AFTER 2ND DOSE; 4TH DOSE: 4 HRS AFTER THE 3RD DOSE.
     Route: 048
     Dates: start: 20161125, end: 20161125

REACTIONS (2)
  - Drug hypersensitivity [Unknown]
  - Drug-induced liver injury [Unknown]
